FAERS Safety Report 9465797 (Version 1)
Quarter: 2013Q3

REPORT INFORMATION
  Report Type: Spontaneous
  Country: US (occurrence: US)
  Receive Date: 20130820
  Receipt Date: 20130820
  Transmission Date: 20140515
  Serious: Yes (Other)
  Sender: FDA-Public Use
  Company Number: US-PFIZER INC-2013236820

PATIENT
  Age: 73 Year
  Sex: Female
  Weight: 79.37 kg

DRUGS (8)
  1. REVATIO [Suspect]
     Indication: PULMONARY HYPERTENSION
     Dosage: 20 MG, 3X/DAY
  2. WARFARIN [Concomitant]
     Indication: THROMBOSIS
     Dosage: 5 MG, 1X/DAY
  3. TORSEMIDE [Concomitant]
     Indication: DIURETIC THERAPY
     Dosage: 10 MG, 1X/DAY
  4. DILTIAZEM [Concomitant]
     Indication: BLOOD PRESSURE ABNORMAL
     Dosage: 180 MG, 1X/DAY
  5. ATENOLOL [Concomitant]
     Indication: BLOOD PRESSURE ABNORMAL
     Dosage: 100 MG, 1X/DAY
  6. PRAVASTATIN [Concomitant]
     Indication: BLOOD CHOLESTEROL INCREASED
     Dosage: 40 MG, 1X/DAY
  7. SPIRIVA [Concomitant]
     Indication: CHRONIC OBSTRUCTIVE PULMONARY DISEASE
     Dosage: 18 UG, 1X/DAY
  8. POTASSIUM CHLORIDE [Concomitant]
     Indication: HYPOKALAEMIA
     Dosage: 20 MEQ, 1X/DAY

REACTIONS (2)
  - Pulmonary thrombosis [Unknown]
  - Dyspepsia [Unknown]
